FAERS Safety Report 7916307-7 (Version None)
Quarter: 2011Q4

REPORT INFORMATION
  Report Type: 
  Country: None (occurrence: None)
  Receive Date: 20111116
  Receipt Date: 20111108
  Transmission Date: 20120403
  Serious: No
  Sender: FDA-Public Use
  Company Number: US-BIOGENIDEC-2011BI042697

PATIENT
  Age: 66 Year
  Sex: Male

DRUGS (3)
  1. TYSABRI [Suspect]
     Route: 042
     Dates: start: 20040701, end: 20060701
  2. TYSABRI [Suspect]
     Indication: MULTIPLE SCLEROSIS
     Route: 042
     Dates: start: 20110411
  3. TYSABRI [Suspect]
     Route: 042
     Dates: start: 20061011, end: 20081124

REACTIONS (3)
  - INSOMNIA [None]
  - LOWER RESPIRATORY TRACT INFECTION [None]
  - NIGHTMARE [None]
